FAERS Safety Report 4301139-1 (Version None)
Quarter: 2004Q1

REPORT INFORMATION
  Report Type: 
  Country: None (occurrence: None)
  Receive Date: 20040219
  Receipt Date: 20040204
  Transmission Date: 20041129
  Serious: Yes (Hospitalization, Other)
  Sender: FDA-Public Use
  Company Number: 2004IM000305

PATIENT
  Age: 36 Year
  Sex: Male

DRUGS (2)
  1. ADVAFERON (A643_INTERFERON ALFACON-1) [Suspect]
     Indication: HEPATITIS C
     Dosage: 18 MU;QD;SUBCUTANEOUS
     Route: 058
     Dates: start: 20020807
  2. INDOMETHACIN [Concomitant]

REACTIONS (6)
  - DIZZINESS [None]
  - DYSSTASIA [None]
  - EYE PAIN [None]
  - NAUSEA [None]
  - NYSTAGMUS [None]
  - VERTIGO [None]
